FAERS Safety Report 5471688-1 (Version None)
Quarter: 2007Q3

REPORT INFORMATION
  Report Type: 
  Country: None (occurrence: None)
  Receive Date: 20070928
  Receipt Date: 20070404
  Transmission Date: 20080115
  Serious: No
  Sender: FDA-Public Use
  Company Number: US-BRISTOL-MYERS SQUIBB COMPANY-13738141

PATIENT
  Sex: Male
  Weight: 102 kg

DRUGS (10)
  1. DEFINITY [Suspect]
     Indication: STRESS ECHOCARDIOGRAM
     Dosage: ADDITIONAL 0.2CC GIVEN WITH NO ADVERSE REACTION.
     Route: 040
     Dates: start: 20070403
  2. GLUCOPHAGE [Concomitant]
  3. IMDUR [Concomitant]
  4. CELEXA [Concomitant]
  5. PLAVIX [Concomitant]
  6. VYTORIN [Concomitant]
  7. HYTRIN [Concomitant]
  8. TOPROL-XL [Concomitant]
  9. ASPIRIN [Concomitant]
  10. FLEXERIL [Concomitant]

REACTIONS (3)
  - CHEST DISCOMFORT [None]
  - MUSCLE SPASMS [None]
  - MUSCULOSKELETAL DISCOMFORT [None]
